FAERS Safety Report 10690746 (Version 1)
Quarter: 2014Q4

REPORT INFORMATION
  Report Type: Spontaneous
  Country: US (occurrence: None)
  Receive Date: 20141218
  Receipt Date: 20141218
  Transmission Date: 20150529
  Serious: Yes (Other)
  Sender: FDA-Public Use
  Company Number: PHEH2014US020978

PATIENT
  Age: 54 Year
  Sex: Female

DRUGS (7)
  1. PROGRAF [Suspect]
     Active Substance: TACROLIMUS\TACROLIMUS ANHYDROUS
     Indication: IMMUNOSUPPRESSION
     Dates: start: 201401
  2. ASPIRIN (ACETYLSALICYLIC ACID) [Concomitant]
     Active Substance: ASPIRIN
  3. MYFORTIC (MYCOPHENOLIC ACID) UNKNOWN [Suspect]
     Active Substance: MYCOPHENOLATE SODIUM
     Indication: IMMUNOSUPPRESSION
     Dates: start: 201401
  4. VALCYTE [Suspect]
     Active Substance: VALGANCICLOVIR HYDROCHLORIDE
     Indication: PRODUCT USED FOR UNKNOWN INDICATION
  5. PROGRAF [Suspect]
     Active Substance: TACROLIMUS\TACROLIMUS ANHYDROUS
     Indication: RENAL TRANSPLANT
     Dates: start: 201401
  6. MYFORTIC (MYCOPHENOLIC ACID) UNKNOWN [Suspect]
     Active Substance: MYCOPHENOLATE SODIUM
     Indication: RENAL TRANSPLANT
     Dates: start: 201401
  7. NEUPOGEN (FILGRASTIM) [Suspect]
     Active Substance: FILGRASTIM
     Indication: PRODUCT USED FOR UNKNOWN INDICATION

REACTIONS (8)
  - White blood cell count decreased [None]
  - Feeling hot [None]
  - Vessel perforation [None]
  - Arthralgia [None]
  - Peripheral swelling [None]
  - Joint swelling [None]
  - Osteoarthritis [None]
  - Lymphadenopathy [None]

NARRATIVE: CASE EVENT DATE: 201406
